FAERS Safety Report 8559891-5 (Version None)
Quarter: 2012Q3

REPORT INFORMATION
  Report Type: 
  Country: None (occurrence: None)
  Receive Date: 20120727
  Receipt Date: 20120727
  Transmission Date: 20120928
  Serious: Yes (Hospitalization)
  Sender: FDA-Public Use
  Company Number: None

PATIENT
  Sex: Female
  Weight: 59 kg

DRUGS (1)
  1. TAXOL [Suspect]
     Dates: start: 20120713

REACTIONS (3)
  - NAUSEA [None]
  - PAIN [None]
  - DEHYDRATION [None]
